FAERS Safety Report 21919662 (Version 4)
Quarter: 2023Q1

REPORT INFORMATION
  Report Type: Spontaneous
  Country: AU (occurrence: AU)
  Receive Date: 20230127
  Receipt Date: 20230328
  Transmission Date: 20230418
  Serious: Yes (Other)
  Sender: FDA-Public Use
  Company Number: AU-GLAXOSMITHKLINE-AU2023APC010732

PATIENT

DRUGS (1)
  1. ALBUTEROL SULFATE [Suspect]
     Active Substance: ALBUTEROL SULFATE
     Indication: Asthma
     Dosage: UNK 100MCG 1INHX200

REACTIONS (7)
  - Incorrect dose administered [Unknown]
  - Emotional distress [Unknown]
  - Cough [Unknown]
  - Product use issue [Unknown]
  - Wrong technique in product usage process [Unknown]
  - Product dose omission issue [Unknown]
  - Product quality issue [Unknown]
